FAERS Safety Report 4508915-0 (Version None)
Quarter: 2004Q4

REPORT INFORMATION
  Report Type: 
  Country: None (occurrence: None)
  Receive Date: 20041123
  Receipt Date: 20041116
  Transmission Date: 20050328
  Serious: Yes (Death, Hospitalization)
  Sender: FDA-Public Use
  Company Number: CHROB-S-20040006

PATIENT
  Age: 69 Year
  Sex: Female

DRUGS (1)
  1. NAVELBINE [Suspect]
     Dosage: 40MG CUMULATIVE DOSE
     Route: 042
     Dates: start: 20041030, end: 20041105

REACTIONS (2)
  - ACUTE ABDOMEN [None]
  - EXTRAVASATION [None]
